FAERS Safety Report 8620780-9 (Version None)
Quarter: 2012Q3

REPORT INFORMATION
  Report Type: 
  Country: None (occurrence: None)
  Receive Date: 20120824
  Receipt Date: 20120731
  Transmission Date: 20120928
  Serious: Yes (Hospitalization)
  Sender: FDA-Public Use
  Company Number: US-ROCHE-1078647

PATIENT
  Sex: Female

DRUGS (31)
  1. COPEGUS [Suspect]
     Indication: HEPATITIS C
     Dosage: TDD: 1200 MG, LAST DOSE PRIOR  TO SAE: 03/MAY/2012
     Route: 048
     Dates: start: 20120207
  2. SUMATRIPTAN [Concomitant]
     Route: 058
     Dates: start: 20120225, end: 20120225
  3. BENZOCAINE [Concomitant]
     Route: 061
     Dates: start: 20120305, end: 20120312
  4. LISINOPRIL [Concomitant]
  5. LIDOCAINE [Concomitant]
     Dates: start: 20120124, end: 20120124
  6. IBUPROFEN [Concomitant]
     Route: 048
     Dates: start: 20120207, end: 20120207
  7. ONDANSETRON [Concomitant]
     Route: 048
     Dates: start: 20120225, end: 20120225
  8. METOPROLOL TARTRATE [Concomitant]
  9. THERAFLU (UNK INGREDIENTS) [Concomitant]
     Route: 047
     Dates: start: 20120327
  10. PEGASYS [Suspect]
     Indication: HEPATITIS C
     Dosage: TDD:180 MICROGRAM, LAST DOSE PRIOR TO SAE: 03/MAY/2012
     Route: 058
     Dates: start: 20120207
  11. IBUPROFEN [Concomitant]
     Route: 048
     Dates: start: 20120214, end: 20120214
  12. IBUPROFEN [Concomitant]
     Route: 048
     Dates: start: 20120223
  13. BENADRYL [Concomitant]
     Dates: start: 20120214, end: 20120216
  14. AMOXICILLIN [Concomitant]
     Route: 048
     Dates: start: 20120307, end: 20120314
  15. ZOSYN [Concomitant]
  16. LORAZEPAM [Concomitant]
  17. PREDNISONE TAB [Concomitant]
  18. TYLENOL [Concomitant]
     Route: 048
     Dates: start: 20120210, end: 20120210
  19. TYLENOL [Concomitant]
     Dates: start: 20120223, end: 20120223
  20. AMBIEN [Concomitant]
  21. NORCO [Concomitant]
  22. ROBITUSSIN (CANADA) [Concomitant]
     Route: 048
     Dates: start: 20120327
  23. DILAUDID [Concomitant]
  24. ZOFRAN [Concomitant]
  25. METHYLPREDNISONE (UNK INGREDIENTS) [Concomitant]
  26. MAGNESIUM OXIDE [Concomitant]
  27. FERROUS GLUCONATE [Concomitant]
  28. FENTANYL [Concomitant]
     Dates: start: 20120124, end: 20120124
  29. BLINDED INX-08189 [Suspect]
     Indication: HEPATITIS C
     Dosage: LAST DOSE PRIOR TO SAE: 03/MAY/2012
     Route: 048
     Dates: start: 20120207
  30. HYDROCODONE BITARTRATE [Concomitant]
     Dosage: 1 TO 2 TABLETS AS NEEDED
     Dates: start: 20111224
  31. IBUPROFEN [Concomitant]
     Route: 048
     Dates: start: 20120215, end: 20120215

REACTIONS (6)
  - CHOLECYSTITIS [None]
  - DIALYSIS [None]
  - RENAL FAILURE ACUTE [None]
  - MALAISE [None]
  - CONGESTIVE CARDIOMYOPATHY [None]
  - PYREXIA [None]
